FAERS Safety Report 16271765 (Version 2)
Quarter: 2019Q2

REPORT INFORMATION
  Report Type: Report from Study
  Country: AU (occurrence: AU)
  Receive Date: 20190506
  Receipt Date: 20190509
  Transmission Date: 20190711
  Serious: Yes (Hospitalization)
  Sender: FDA-Public Use
  Company Number: AU-ROCHE-2311228

PATIENT
  Age: 70 Year
  Sex: Male

DRUGS (3)
  1. ACTEMRA [Suspect]
     Active Substance: TOCILIZUMAB
     Indication: RHEUMATOID ARTHRITIS
     Route: 042
     Dates: start: 20130815
  2. ASPIRIN [ACETYLSALICYLIC ACID] [Concomitant]
     Active Substance: ASPIRIN
     Route: 065
  3. ACTEMRA [Suspect]
     Active Substance: TOCILIZUMAB
     Route: 042
     Dates: start: 20150416

REACTIONS (3)
  - Chest pain [Recovered/Resolved]
  - Tachycardia [Unknown]
  - Hypertension [Recovered/Resolved]

NARRATIVE: CASE EVENT DATE: 20190430
